FAERS Safety Report 19661578 (Version 5)
Quarter: 2022Q1

REPORT INFORMATION
  Report Type: Spontaneous
  Country: US (occurrence: US)
  Receive Date: 20210805
  Receipt Date: 20220114
  Transmission Date: 20220423
  Serious: Yes (Other)
  Sender: FDA-Public Use
  Company Number: US-PFIZER INC-202100991659

PATIENT
  Age: 77 Year
  Sex: Female
  Weight: 54.875 kg

DRUGS (1)
  1. PREMARIN [Suspect]
     Active Substance: ESTROGENS, CONJUGATED
     Dosage: (0.5G-2G), DAILY

REACTIONS (2)
  - Neoplasm malignant [Recovering/Resolving]
  - Fatigue [Unknown]
